FAERS Safety Report 21800653 (Version 1)
Quarter: 2022Q4

REPORT INFORMATION
  Report Type: Spontaneous
  Country: US (occurrence: US)
  Receive Date: 20221230
  Receipt Date: 20221230
  Transmission Date: 20230113
  Serious: No
  Sender: FDA-Public Use
  Company Number: US-TAKEDA-2022TUS103350

PATIENT

DRUGS (1)
  1. MOTEGRITY [Suspect]
     Active Substance: PRUCALOPRIDE SUCCINATE
     Indication: Product used for unknown indication
     Dosage: UNK
     Route: 065

REACTIONS (7)
  - Feeding disorder [Unknown]
  - Abdominal distension [Unknown]
  - Pain [Unknown]
  - Swelling [Unknown]
  - Depression [Unknown]
  - Nausea [Unknown]
  - Product availability issue [Unknown]
